FAERS Safety Report 22034536 (Version 2)
Quarter: 2023Q1

REPORT INFORMATION
  Report Type: Spontaneous
  Country: PT (occurrence: PT)
  Receive Date: 20230224
  Receipt Date: 20230321
  Transmission Date: 20230418
  Serious: Yes (Life-Threatening, Hospitalization, Other)
  Sender: FDA-Public Use
  Company Number: PT-ARISTO PHARMA-ALLO202301232

PATIENT
  Age: 72 Year
  Sex: Female

DRUGS (2)
  1. ALLOPURINOL [Suspect]
     Active Substance: ALLOPURINOL
     Indication: Hyperuricaemia
     Dosage: UNK, UNKNOWN DOSAGE
     Route: 065
  2. ALLOPURINOL [Suspect]
     Active Substance: ALLOPURINOL
     Indication: Chronic kidney disease

REACTIONS (4)
  - Cardio-respiratory arrest [Unknown]
  - Gastric perforation [Recovering/Resolving]
  - Drug reaction with eosinophilia and systemic symptoms [Recovering/Resolving]
  - Type IV hypersensitivity reaction [Recovering/Resolving]
